FAERS Safety Report 5272150-1 (Version None)
Quarter: 2007Q1

REPORT INFORMATION
  Report Type: 
  Country: None (occurrence: None)
  Receive Date: 20070322
  Receipt Date: 20070315
  Transmission Date: 20070707
  Serious: Yes (Hospitalization)
  Sender: FDA-Public Use
  Company Number: 2007AC00469

PATIENT
  Age: 47 Year
  Sex: Male

DRUGS (5)
  1. SEROQUEL [Suspect]
     Indication: SCHIZOPHRENIA
     Route: 048
     Dates: start: 20070106, end: 20070119
  2. SOLIAN [Suspect]
     Indication: SCHIZOPHRENIA
     Route: 048
     Dates: start: 20070119, end: 20070120
  3. RISPERDAL CONSTA [Suspect]
     Indication: SCHIZOPHRENIA
     Route: 030
     Dates: start: 20070115, end: 20070115
  4. AUXINA A+E [Concomitant]
     Route: 048
     Dates: start: 20070116
  5. IDALPREM [Concomitant]
     Route: 048
     Dates: start: 20070106

REACTIONS (1)
  - ANTICHOLINERGIC SYNDROME [None]
